FAERS Safety Report 12183250 (Version 1)
Quarter: 2016Q1

REPORT INFORMATION
  Report Type: Spontaneous
  Country: US (occurrence: US)
  Receive Date: 20160316
  Receipt Date: 20160316
  Transmission Date: 20160526
  Serious: Yes (Other)
  Sender: FDA-Public Use
  Company Number: US-PFIZER INC-2016150176

PATIENT
  Age: 70 Year
  Sex: Female
  Weight: 91 kg

DRUGS (1)
  1. PROTONIX [Suspect]
     Active Substance: PANTOPRAZOLE SODIUM
     Indication: OESOPHAGEAL HAEMORRHAGE
     Dosage: 40 MG, 2X/DAY
     Route: 048
     Dates: start: 2009

REACTIONS (4)
  - Pneumonia [Recovered/Resolved]
  - Blood test abnormal [Recovered/Resolved]
  - Product use issue [Unknown]
  - Body mass index decreased [Unknown]

NARRATIVE: CASE EVENT DATE: 2009
